FAERS Safety Report 5041242-4 (Version None)
Quarter: 2006Q3

REPORT INFORMATION
  Report Type: 
  Country: None (occurrence: None)
  Receive Date: 20060703
  Receipt Date: 20060301
  Transmission Date: 20061208
  Serious: Yes (Other)
  Sender: FDA-Public Use
  Company Number: DE-GLAXOSMITHKLINE-D0048884A

PATIENT
  Age: 7 Year
  Sex: Male
  Weight: 22 kg

DRUGS (2)
  1. ALBUTEROL [Suspect]
     Indication: ASTHMA
     Dosage: 8DROP PER DAY
     Route: 055
     Dates: start: 20051201, end: 20060220
  2. ATROVENT [Concomitant]
     Indication: ASTHMA
     Dosage: 20CAP PER DAY
     Route: 055
     Dates: start: 20051201, end: 20060220

REACTIONS (4)
  - DISTURBANCE IN ATTENTION [None]
  - INSOMNIA [None]
  - NERVOUSNESS [None]
  - TACHYCARDIA [None]
